FAERS Safety Report 6254659-7 (Version None)
Quarter: 2009Q3

REPORT INFORMATION
  Report Type: 
  Country: None (occurrence: None)
  Receive Date: 20090702
  Receipt Date: 20090625
  Transmission Date: 20100115
  Serious: Yes (Other)
  Sender: FDA-Public Use
  Company Number: B0581793A

PATIENT
  Age: 7 Year
  Sex: Male

DRUGS (1)
  1. LANOXIN [Suspect]
     Indication: HEART DISEASE CONGENITAL
     Route: 048
     Dates: start: 20090331

REACTIONS (2)
  - DYSGRAPHIA [None]
  - VISUAL IMPAIRMENT [None]
